FAERS Safety Report 16402927 (Version 4)
Quarter: 2019Q4

REPORT INFORMATION
  Report Type: Spontaneous
  Country: JP (occurrence: JP)
  Receive Date: 20190607
  Receipt Date: 20191218
  Transmission Date: 20200122
  Serious: Yes (Death, Hospitalization)
  Sender: FDA-Public Use
  Company Number: JP-KYOWAKIRIN-2019AKK007223

PATIENT

DRUGS (19)
  1. KETOPROFEN. [Concomitant]
     Active Substance: KETOPROFEN
     Indication: BACK PAIN
     Dosage: 40 MG, QD
     Dates: start: 20190414
  2. LEVOFLOXACIN HEMIHYDRATE [Concomitant]
     Active Substance: LEVOFLOXACIN
     Indication: BACTERIAL INFECTION
     Dosage: 500 MG, QD, AFTER BREAKFAST
     Route: 048
     Dates: start: 20190427, end: 20190427
  3. FUROSEMIDE. [Concomitant]
     Active Substance: FUROSEMIDE
     Indication: OEDEMA DUE TO RENAL DISEASE
     Dosage: 40 MG, QD, AFTER BREAKFAST
     Route: 048
     Dates: end: 20190722
  4. AROTINOLOL HYDROCHLORIDE [Concomitant]
     Active Substance: AROTINOLOL HYDROCHLORIDE
     Indication: ATRIAL FIBRILLATION
     Dosage: 5 MG, QD, AFTER BREAKFAST
     Route: 048
     Dates: end: 20190513
  5. WARFARIN [WARFARIN POTASSIUM] [Concomitant]
     Active Substance: WARFARIN POTASSIUM
     Dosage: 0.5 MG, QD, AFTER DINNER
     Route: 048
     Dates: end: 20190923
  6. SENNOSIDE A+B [Concomitant]
     Active Substance: SENNOSIDES A AND B
     Indication: CONSTIPATION
     Dosage: 24 MG, QD, BEFORE BEDTIME
     Route: 048
     Dates: end: 20190708
  7. LEVOFLOXACIN HEMIHYDRATE [Concomitant]
     Active Substance: LEVOFLOXACIN
     Dosage: 250 MG, QD, AFTER BREAKFAST
     Route: 048
     Dates: start: 20190428, end: 20190506
  8. SOLITA-T3 [Concomitant]
     Active Substance: POTASSIUM CHLORIDE\SODIUM CHLORIDE\SODIUM LACTATE
     Indication: DECREASED APPETITE
     Dosage: 500 ML, QD
     Route: 041
     Dates: start: 20190430, end: 20190507
  9. ATORVASTATIN [Concomitant]
     Active Substance: ATORVASTATIN
     Indication: HYPERLIPIDAEMIA
     Dosage: 5 MG, QD, AFTER BREAKFAST
     Route: 048
     Dates: end: 20190729
  10. TAKECAB [Concomitant]
     Active Substance: VONOPRAZAN FUMURATE
     Indication: GASTRIC ULCER
     Dosage: 10 MG, QD, AFTER BREAKFAST
     Route: 048
     Dates: end: 20190729
  11. WARFARIN [WARFARIN POTASSIUM] [Concomitant]
     Active Substance: WARFARIN POTASSIUM
     Indication: ATRIAL FIBRILLATION
     Dosage: 1 MG, QD, AFTER DINNER
     Route: 048
     Dates: end: 20190923
  12. FLUCONAZOLE. [Concomitant]
     Active Substance: FLUCONAZOLE
     Indication: INFECTION PROPHYLAXIS
     Dosage: 100 MG, QD, AFTER BREAKFAST
     Route: 048
     Dates: start: 20190427, end: 20190520
  13. AZOSEMIDE [Concomitant]
     Active Substance: AZOSEMIDE
     Indication: OEDEMA DUE TO RENAL DISEASE
     Dosage: 30 MG, QD, AFTER BREAKFAST
     Route: 048
     Dates: end: 20190729
  14. SEISHOKU [Concomitant]
     Active Substance: SODIUM CHLORIDE
     Dosage: 250 ML
     Route: 041
     Dates: start: 20190426
  15. SODIUM BICARBONATE. [Concomitant]
     Active Substance: SODIUM BICARBONATE
     Indication: CHRONIC KIDNEY DISEASE
     Dosage: 1 G, BID, AFTER BREAKFAST AND DINNER
     Route: 065
     Dates: end: 20190923
  16. AMLODIPINE [AMLODIPINE BESILATE] [Concomitant]
     Active Substance: AMLODIPINE BESYLATE
     Indication: HYPERTENSION
     Dosage: 5 MG, QD, AFTER BREAKFAST
     Route: 048
     Dates: end: 20190923
  17. CALONAL [Concomitant]
     Active Substance: ACETAMINOPHEN
     Indication: PREMEDICATION
     Dosage: 400 MG, 30 MINUTES BEFORE THE ADMINISTRATION OF POTELIGEO
     Route: 048
     Dates: start: 20190426
  18. SOLITA-T3 [Concomitant]
     Active Substance: POTASSIUM CHLORIDE\SODIUM CHLORIDE\SODIUM LACTATE
     Indication: FLUID REPLACEMENT
  19. POTELIGEO [Suspect]
     Active Substance: MOGAMULIZUMAB-KPKC
     Indication: ADULT T-CELL LYMPHOMA/LEUKAEMIA
     Dosage: 60 MG
     Route: 041
     Dates: start: 20190426

REACTIONS (2)
  - Cholecystitis [Recovering/Resolving]
  - Bacterial infection [Unknown]

NARRATIVE: CASE EVENT DATE: 20190501
